FAERS Safety Report 4500459-5 (Version None)
Quarter: 2004Q4

REPORT INFORMATION
  Report Type: 
  Country: None (occurrence: None)
  Receive Date: 20040928
  Receipt Date: 20040803
  Transmission Date: 20050328
  Serious: No
  Sender: FDA-Public Use
  Company Number: 04P-163-0269093

PATIENT
  Age: 75 Year
  Sex: Female

DRUGS (3)
  1. HUMIRA [Suspect]
     Indication: RHEUMATOID ARTHRITIS
     Dosage: 40 MG 1 IN 2 WK SUBCUTANEOUS
     Route: 058
     Dates: start: 20030601
  2. PARACETAMOL [Concomitant]
  3. METOPROLOL TARTRATE [Concomitant]

REACTIONS (2)
  - INJECTION SITE HAEMORRHAGE [None]
  - URINARY TRACT INFECTION [None]
